FAERS Safety Report 17136830 (Version 1)
Quarter: 2019Q4

REPORT INFORMATION
  Report Type: Spontaneous
  Country: CN (occurrence: CN)
  Receive Date: 20191210
  Receipt Date: 20191210
  Transmission Date: 20200122
  Serious: Yes (Hospitalization, Other)
  Sender: FDA-Public Use
  Company Number: NVSC2019CN062902

PATIENT
  Age: 46 Year
  Sex: Female
  Weight: 45 kg

DRUGS (6)
  1. MYFORTIC [Suspect]
     Active Substance: MYCOPHENOLATE SODIUM
     Indication: IMMUNOSUPPRESSANT DRUG THERAPY
     Dosage: 1 CAPSULE, BID
     Route: 065
  2. TACROLIMUS. [Suspect]
     Active Substance: TACROLIMUS
     Indication: IMMUNOSUPPRESSANT DRUG THERAPY
  3. TACROLIMUS. [Suspect]
     Active Substance: TACROLIMUS
     Indication: RENAL TRANSPLANT
     Dosage: 1 CAPSULE BID
     Route: 065
  4. MYFORTIC [Suspect]
     Active Substance: MYCOPHENOLATE SODIUM
     Indication: RENAL TRANSPLANT
     Dosage: UNK, QD (3 CAPSULES)
     Route: 065
  5. MEDROL [Suspect]
     Active Substance: METHYLPREDNISOLONE
     Indication: RENAL TRANSPLANT
     Dosage: 2 TABLETS , QD
     Route: 065
  6. MEDROL [Suspect]
     Active Substance: METHYLPREDNISOLONE
     Indication: IMMUNOSUPPRESSANT DRUG THERAPY

REACTIONS (9)
  - Pyrexia [Recovering/Resolving]
  - Chest discomfort [Recovering/Resolving]
  - Dyspnoea [Unknown]
  - Pneumonia [Recovering/Resolving]
  - Cytomegalovirus infection [Recovering/Resolving]
  - Cough [Recovering/Resolving]
  - Respiratory alkalosis [Unknown]
  - Metabolic acidosis [Unknown]
  - Respiratory failure [Unknown]
